FAERS Safety Report 8983690 (Version 1)
Quarter: 2012Q4

REPORT INFORMATION
  Report Type: 
  Country: FR (occurrence: FR)
  Receive Date: 20121224
  Receipt Date: 20121224
  Transmission Date: 20130627
  Serious: Yes (Hospitalization)
  Sender: FDA-Public Use
  Company Number: FR-BRISTOL-MYERS SQUIBB COMPANY-17217258

PATIENT
  Age: 90 Year
  Sex: Female

DRUGS (6)
  1. COUMADIN TABS [Suspect]
     Indication: ARRHYTHMIA SUPRAVENTRICULAR
     Route: 048
  2. FUROSEMIDE [Concomitant]
  3. ALDACTONE [Concomitant]
  4. LEVOTHYROX [Concomitant]
  5. CORDARONE [Concomitant]
  6. TRIMETAZIDINE [Concomitant]

REACTIONS (2)
  - Cerebral haematoma [Recovering/Resolving]
  - Fall [Recovering/Resolving]
